FAERS Safety Report 7275401-7 (Version None)
Quarter: 2011Q1

REPORT INFORMATION
  Report Type: 
  Country: None (occurrence: None)
  Receive Date: 20110204
  Receipt Date: 20110127
  Transmission Date: 20110831
  Serious: Yes (Death, Life-Threatening, Hospitalization)
  Sender: FDA-Public Use
  Company Number: TW-MILLENNIUM PHARMACEUTICALS, INC.-2010-02859

PATIENT

DRUGS (3)
  1. MELPHALAN [Suspect]
     Indication: MULTIPLE MYELOMA
     Dosage: 12 MG, CYCLIC
     Dates: start: 20100521, end: 20100524
  2. DEXAMETHASONE [Suspect]
     Indication: MULTIPLE MYELOMA
     Dosage: 40 MG, CYCLIC
     Dates: start: 20100521, end: 20100524
  3. VELCADE [Suspect]
     Indication: MULTIPLE MYELOMA
     Dosage: 1.8 MG, CYCLIC
     Dates: start: 20100521, end: 20100524

REACTIONS (3)
  - SEPTIC SHOCK [None]
  - PNEUMONIA [None]
  - LEUKOPENIA [None]
